FAERS Safety Report 6405722-9 (Version None)
Quarter: 2009Q4

REPORT INFORMATION
  Report Type: 
  Country: None (occurrence: None)
  Receive Date: 20091014
  Receipt Date: 20091002
  Transmission Date: 20100525
  Serious: Yes (Hospitalization)
  Sender: FDA-Public Use
  Company Number: 231486J09USA

PATIENT
  Age: 62 Year
  Sex: Female

DRUGS (8)
  1. REBIF [Suspect]
     Indication: MULTIPLE SCLEROSIS
     Dates: start: 20070101
  2. LASIX (FUROSEMIDE/00032601/) [Concomitant]
  3. ZANAFLEX [Concomitant]
  4. BACLOFEN [Concomitant]
  5. KLONOPIN [Concomitant]
  6. CYMBALTA [Concomitant]
  7. VICODIN [Concomitant]
  8. COZAAR [Concomitant]

REACTIONS (4)
  - BLOOD PRESSURE INCREASED [None]
  - FALL [None]
  - HEAD INJURY [None]
  - PAIN [None]
